FAERS Safety Report 15525547 (Version 1)
Quarter: 2018Q4

REPORT INFORMATION
  Report Type: Spontaneous
  Country: US (occurrence: US)
  Receive Date: 20181019
  Receipt Date: 20181019
  Transmission Date: 20190205
  Serious: Yes (Death, Other)
  Sender: FDA-Public Use
  Company Number: US-B.I. PHARMACEUTICALS,INC./RIDGEFIELD-2018-BI-051559

PATIENT
  Age: 73 Year
  Sex: Female

DRUGS (1)
  1. STIOLTO RESPIMAT [Suspect]
     Active Substance: OLODATEROL HYDROCHLORIDE\TIOTROPIUM BROMIDE MONOHYDRATE
     Indication: EMPHYSEMA
     Dosage: 2 PUIFFS ONCE DAILY; STRENGTH: 2.5 MCG; FORM: INHALATION SPRAY,  ACTION(S) TAKEN: NOT APPLICABLE
     Route: 055
     Dates: start: 201804, end: 201809

REACTIONS (1)
  - Death [Fatal]

NARRATIVE: CASE EVENT DATE: 20181015
